FAERS Safety Report 7399035-9 (Version None)
Quarter: 2011Q2

REPORT INFORMATION
  Report Type: 
  Country: None (occurrence: None)
  Receive Date: 20110407
  Receipt Date: 20110406
  Transmission Date: 20111010
  Serious: Yes (Hospitalization)
  Sender: FDA-Public Use
  Company Number: MX-ABBOTT-10P-107-0692018-00

PATIENT
  Sex: Female
  Weight: 65 kg

DRUGS (1)
  1. KLARICID IV [Suspect]
     Indication: UPPER RESPIRATORY TRACT INFECTION
     Route: 042
     Dates: start: 20100923, end: 20100923

REACTIONS (6)
  - ANAPHYLACTIC SHOCK [None]
  - MUSCULAR WEAKNESS [None]
  - LARYNGOSPASM [None]
  - HYPOXIA [None]
  - PHLEBITIS [None]
  - COUGH [None]
